FAERS Safety Report 5633579-2 (Version None)
Quarter: 2008Q1

REPORT INFORMATION
  Report Type: 
  Country: None (occurrence: None)
  Receive Date: 20080221
  Receipt Date: 20080218
  Transmission Date: 20080703
  Serious: Yes (Hospitalization)
  Sender: FDA-Public Use
  Company Number: PHEH2008US01746

PATIENT
  Age: 65 Year
  Sex: Female
  Weight: 57 kg

DRUGS (4)
  1. DITROPAN /USA/ [Concomitant]
     Dosage: 5 MG, QD
  2. MULTIVITAMIN ^LAPPE^ [Concomitant]
  3. CALCIUM W/VITAMIN D NOS [Concomitant]
  4. RECLAST [Suspect]
     Dosage: 5 MG, UNK
     Dates: start: 20080124

REACTIONS (3)
  - BLOOD CALCIUM DECREASED [None]
  - HYPOCALCAEMIA [None]
  - PARAESTHESIA [None]
